FAERS Safety Report 7044655-4 (Version None)
Quarter: 2010Q4

REPORT INFORMATION
  Report Type: 
  Country: None (occurrence: None)
  Receive Date: 20101014
  Receipt Date: 20101008
  Transmission Date: 20110411
  Serious: Yes (Other)
  Sender: FDA-Public Use
  Company Number: GB-WYE-G06788610

PATIENT
  Sex: Male

DRUGS (3)
  1. IBUPROFEN [Suspect]
     Indication: PAIN
     Route: 048
  2. PARACETAMOL [Concomitant]
     Indication: MYALGIA
     Route: 048
  3. ACETYLSALICYLIC ACID SRT [Concomitant]
     Indication: PROPHYLAXIS
     Dosage: UNKNOWN

REACTIONS (5)
  - GENERALISED OEDEMA [None]
  - MYALGIA [None]
  - PRURITUS [None]
  - RASH [None]
  - SKIN EXFOLIATION [None]
